FAERS Safety Report 16732123 (Version 1)
Quarter: 2019Q3

REPORT INFORMATION
  Report Type: Spontaneous
  Country: MX (occurrence: MX)
  Receive Date: 20190822
  Receipt Date: 20190822
  Transmission Date: 20191005
  Serious: Yes (Other)
  Sender: FDA-Public Use
  Company Number: MX-BAUSCH-BL-2019-024004

PATIENT
  Sex: Female

DRUGS (1)
  1. CLINDAMYCIN. [Suspect]
     Active Substance: CLINDAMYCIN
     Indication: OVARIAN CANCER STAGE III
     Dosage: 2 CYCLICAL
     Route: 065

REACTIONS (2)
  - Erythema [Recovered/Resolved]
  - Dermatosis [Recovered/Resolved]
